FAERS Safety Report 8396101 (Version 2)
Quarter: 2013Q3

REPORT INFORMATION
  Report Type: Report from Study
  Country: DE (occurrence: DE)
  Receive Date: 20120208
  Receipt Date: 20130816
  Transmission Date: 20140515
  Serious: Yes (Other)
  Sender: FDA-Public Use
  Company Number: DE-UCBSA-050434

PATIENT
  Sex: Male

DRUGS (6)
  1. CIMZIA [Suspect]
     Indication: RHEUMATOID ARTHRITIS
     Route: 058
     Dates: start: 20110329, end: 20120730
  2. MICARDIS [Concomitant]
     Indication: HYPERTENSION
     Dates: start: 201111
  3. AMLODIPIN [Concomitant]
     Indication: HYPERTENSION
     Dates: start: 201111
  4. ARAVA [Concomitant]
     Indication: RHEUMATOID ARTHRITIS
     Dates: start: 20071122
  5. PREDNISOLON [Concomitant]
     Indication: PAIN
     Dosage: 40 BIS 5 MG AS NEEDED
     Dates: start: 200711
  6. PREDNISOLON [Concomitant]
     Indication: RHEUMATOID ARTHRITIS
     Dosage: 40 BIS 5 MG AS NEEDED
     Dates: start: 200711

REACTIONS (1)
  - Herpes zoster [Recovered/Resolved]
